FAERS Safety Report 14716296 (Version 1)
Quarter: 2018Q2

REPORT INFORMATION
  Report Type: Spontaneous
  Country: JP (occurrence: JP)
  Receive Date: 20180404
  Receipt Date: 20180404
  Transmission Date: 20180711
  Serious: Yes (Other)
  Sender: FDA-Public Use
  Company Number: JP-PFIZER INC-2018134468

PATIENT
  Age: 87 Year
  Sex: Male

DRUGS (11)
  1. TOVIAZ [Suspect]
     Active Substance: FESOTERODINE FUMARATE
     Dosage: 4 MG, 1X/DAY
     Route: 048
     Dates: start: 20180326, end: 20180326
  2. MULCHINA [Concomitant]
  3. CEFZON [Concomitant]
     Active Substance: CEFDINIR
  4. MICAMLO AP [Concomitant]
     Active Substance: AMLODIPINE BESYLATE\TELMISARTAN
     Dosage: 1 TABLET, 1X/DAY IN THE MORNING
  5. MYSLEE [Concomitant]
     Active Substance: ZOLPIDEM TARTRATE
     Dosage: 1 TABLET, 1X/DAY BEFORE BEDTIME
  6. BEPOTASTINE BESILATE [Interacting]
     Active Substance: BEPOTASTINE BESILATE
     Indication: RHINORRHOEA
     Dosage: 10 MG, 2X/DAY
     Route: 048
     Dates: start: 20180326, end: 20180328
  7. TRAMCET [Concomitant]
     Active Substance: ACETAMINOPHEN\TRAMADOL
     Dosage: 2 TABLETS, 2X/DAY
  8. PURSENNID(SENNOSIDE A,B) [Concomitant]
     Dosage: 2 TABLETS, 1X/DAY, BEFORE BEDTIME
  9. CARBOCISTEINE [Concomitant]
     Active Substance: CARBOCYSTEINE
     Dosage: UNK UNK, 3X/DAY
  10. MAGMITT [Concomitant]
     Active Substance: MAGNESIUM OXIDE
     Dosage: 3 TABLETS, 3X/DAY
  11. RIVOTRIL [Concomitant]
     Active Substance: CLONAZEPAM
     Dosage: 2 TABLETS, 1X/DAY, IN THE EVENING

REACTIONS (3)
  - Urinary retention [Recovered/Resolved]
  - Insomnia [Unknown]
  - Drug interaction [Recovered/Resolved]

NARRATIVE: CASE EVENT DATE: 201803
